FAERS Safety Report 10863894 (Version 1)
Quarter: 2015Q1

REPORT INFORMATION
  Report Type: Spontaneous
  Country: US (occurrence: US)
  Receive Date: 20150224
  Receipt Date: 20150224
  Transmission Date: 20150721
  Serious: Yes (Other)
  Sender: FDA-Public Use
  Company Number: US-TEVA-541749USA

PATIENT
  Sex: Male

DRUGS (1)
  1. CELECOXIB. [Suspect]
     Active Substance: CELECOXIB

REACTIONS (4)
  - Epistaxis [Unknown]
  - Haemorrhage [Unknown]
  - Ocular hyperaemia [Unknown]
  - Product substitution issue [Unknown]
